FAERS Safety Report 8961853 (Version 5)
Quarter: 2013Q3

REPORT INFORMATION
  Report Type: Spontaneous
  Country: JP (occurrence: JP)
  Receive Date: 20121213
  Receipt Date: 20130808
  Transmission Date: 20140515
  Serious: Yes (Other)
  Sender: FDA-Public Use
  Company Number: JP-ELI_LILLY_AND_COMPANY-JP201211006921

PATIENT
  Age: 69 Year
  Sex: Male

DRUGS (4)
  1. GEMZAR [Suspect]
     Indication: PANCREATIC CARCINOMA
     Dosage: 1000 MG/M2, UNK
     Route: 042
     Dates: start: 200705
  2. GEMCITABINE HYDROCHLORIDE [Concomitant]
     Indication: PANCREATIC CARCINOMA
     Dosage: UNK
     Dates: end: 201208
  3. GEMCITABINE HYDROCHLORIDE [Concomitant]
     Dosage: UNK
     Dates: start: 201208, end: 201211
  4. TS-1                               /02422201/ [Concomitant]
     Indication: PANCREATIC CARCINOMA
     Dosage: 80 MG, UNK
     Route: 048
     Dates: start: 20071209, end: 20120719

REACTIONS (2)
  - Hepatic cirrhosis [Not Recovered/Not Resolved]
  - Hepatic fibrosis [Not Recovered/Not Resolved]
